FAERS Safety Report 15544287 (Version 1)
Quarter: 2018Q4

REPORT INFORMATION
  Report Type: Spontaneous
  Country: US (occurrence: US)
  Receive Date: 20181024
  Receipt Date: 20181024
  Transmission Date: 20190205
  Serious: Yes (Death)
  Sender: FDA-Public Use
  Company Number: US-INSYS THERAPEUTICS, INC-INS201810-000384

PATIENT
  Age: 64 Year
  Sex: Female

DRUGS (5)
  1. SUBSYS [Suspect]
     Active Substance: FENTANYL
     Indication: PRODUCT USED FOR UNKNOWN INDICATION
     Route: 060
  2. MARINOL [Concomitant]
     Active Substance: DRONABINOL
  3. SUBSYS [Suspect]
     Active Substance: FENTANYL
     Route: 060
  4. MORPHINE [Concomitant]
     Active Substance: MORPHINE
  5. PRILOSEC [Concomitant]
     Active Substance: OMEPRAZOLE MAGNESIUM

REACTIONS (1)
  - Neoplasm progression [Fatal]

NARRATIVE: CASE EVENT DATE: 20180707
